FAERS Safety Report 8345965-0 (Version None)
Quarter: 2012Q2

REPORT INFORMATION
  Report Type: 
  Country: None (occurrence: None)
  Receive Date: 20120507
  Receipt Date: 20120420
  Transmission Date: 20120825
  Serious: Yes (Hospitalization)
  Sender: FDA-Public Use
  Company Number: FR-1191802

PATIENT
  Age: 39 Year
  Sex: Female

DRUGS (7)
  1. XALATAN [Suspect]
     Dosage: (OPHTHALMIC)
     Route: 047
  2. ICAZ CAPSULES (ICAZ LP) (FORNET) [Suspect]
     Dosage: (5 MG QD ORAL)
     Route: 048
  3. AZOPT [Suspect]
     Dosage: (OPHTHALMIC)
     Route: 047
  4. FUROSEMIDE [Suspect]
     Dosage: (40 MG QD ORAL)
     Route: 048
  5. PRAVASTATIN [Suspect]
     Dosage: (10 MG QD ORAL)
     Route: 048
  6. AZATHIOPRINE [Suspect]
     Dosage: (50 MG BID ORAL)
     Route: 048
     Dates: start: 20100101
  7. TACROLIMUS [Suspect]
     Dosage: (5 MG QD ORAL)
     Route: 048
     Dates: start: 20100101

REACTIONS (1)
  - THROMBOCYTOPENIA [None]
